FAERS Safety Report 8241527-4 (Version None)
Quarter: 2012Q1

REPORT INFORMATION
  Report Type: 
  Country: None (occurrence: None)
  Receive Date: 20120328
  Receipt Date: 20120321
  Transmission Date: 20120608
  Serious: Yes (Other)
  Sender: FDA-Public Use
  Company Number: DE-PFIZER INC-2012073166

PATIENT
  Age: 64 Year
  Sex: Male
  Weight: 120 kg

DRUGS (4)
  1. GABAPENTIN [Concomitant]
     Indication: PSYCHOGENIC PAIN DISORDER
     Dosage: 900 MG, 1X/DAY
     Route: 048
     Dates: start: 20080101
  2. EDRONAX [Concomitant]
     Indication: PSYCHOGENIC PAIN DISORDER
     Dosage: 60 MG, 1X/DAY
     Route: 048
     Dates: start: 20080101
  3. LYRICA [Suspect]
     Indication: PSYCHOGENIC PAIN DISORDER
     Dosage: 450 MG, 1X/DAY
     Route: 048
     Dates: start: 20080101
  4. OMEPRAZOLE [Concomitant]
     Indication: DYSPEPSIA
     Dosage: 20 MG, 1X/DAY
     Route: 048
     Dates: start: 20060101

REACTIONS (2)
  - DRUG WITHDRAWAL SYNDROME [None]
  - DRUG DEPENDENCE [None]
